FAERS Safety Report 12401810 (Version 7)
Quarter: 2019Q1

REPORT INFORMATION
  Report Type: Spontaneous
  Country: US (occurrence: US)
  Receive Date: 20160525
  Receipt Date: 20190212
  Transmission Date: 20190417
  Serious: Yes (Hospitalization, Other)
  Sender: FDA-Public Use
  Company Number: US-PFIZER INC-2016252707

PATIENT
  Age: 88 Year
  Sex: Female
  Weight: 48.5 kg

DRUGS (4)
  1. REVATIO [Suspect]
     Active Substance: SILDENAFIL CITRATE
     Dosage: 40 MG, 3X/DAY (20MG TABLETS, 2 TABLETS 3 TIMES A DAY)
     Route: 048
  2. OPSUMIT [Concomitant]
     Active Substance: MACITENTAN
     Indication: PULMONARY ARTERIAL HYPERTENSION
     Dosage: 10 MG, DAILY
     Route: 048
  3. REVATIO [Suspect]
     Active Substance: SILDENAFIL CITRATE
     Indication: PULMONARY ARTERIAL HYPERTENSION
     Dosage: 20 MG, 3X/DAY
     Route: 048
     Dates: start: 2010
  4. REVATIO [Suspect]
     Active Substance: SILDENAFIL CITRATE
     Dosage: 40 MG, 3X/DAY (20MG TABLETS, 2 TABLETS 3 TIMES A DAY)
     Route: 048

REACTIONS (6)
  - Fall [Not Recovered/Not Resolved]
  - Nasopharyngitis [Recovered/Resolved]
  - Hip fracture [Recovering/Resolving]
  - Prescribed overdose [Unknown]
  - Malaise [Recovered/Resolved]
  - Arthritis [Unknown]

NARRATIVE: CASE EVENT DATE: 2016
